FAERS Safety Report 24574489 (Version 1)
Quarter: 2024Q4

REPORT INFORMATION
  Report Type: Report from Study
  Country: CA (occurrence: CA)
  Receive Date: 20241104
  Receipt Date: 20241104
  Transmission Date: 20250115
  Serious: Yes (Hospitalization, Other)
  Sender: JOHNSON AND JOHNSON
  Company Number: CA-JNJFOC-20240877633

PATIENT
  Age: 16 Year
  Sex: Female

DRUGS (2)
  1. REMICADE [Suspect]
     Active Substance: INFLIXIMAB
     Indication: Colitis ulcerative
     Route: 041
  2. REMICADE [Suspect]
     Active Substance: INFLIXIMAB
     Route: 041
     Dates: start: 20210723

REACTIONS (1)
  - Colitis ulcerative [Recovering/Resolving]

NARRATIVE: CASE EVENT DATE: 20240101
